FAERS Safety Report 24446642 (Version 1)
Quarter: 2024Q4

REPORT INFORMATION
  Report Type: Spontaneous
  Country: US (occurrence: US)
  Receive Date: 20241016
  Receipt Date: 20241016
  Transmission Date: 20250114
  Serious: No
  Sender: LUNDBECK
  Company Number: US-LUNDBECK-DKLU4004618

PATIENT

DRUGS (2)
  1. NORTHERA [Suspect]
     Active Substance: DROXIDOPA
     Indication: Arrhythmia
     Dosage: 100 MILLIGRAM
     Dates: start: 202108
  2. NORTHERA [Suspect]
     Active Substance: DROXIDOPA
     Indication: Dizziness

REACTIONS (1)
  - Intentional underdose [Unknown]
